FAERS Safety Report 17931230 (Version 2)
Quarter: 2022Q1

REPORT INFORMATION
  Report Type: Spontaneous
  Country: ES (occurrence: ES)
  Receive Date: 20200623
  Receipt Date: 20220307
  Transmission Date: 20220423
  Serious: Yes (Life-Threatening)
  Sender: FDA-Public Use
  Company Number: ES-KRKA-ES2020K10024LIT

PATIENT
  Age: 66 Year
  Sex: Male

DRUGS (5)
  1. LOPINAVIR\RITONAVIR [Interacting]
     Active Substance: LOPINAVIR\RITONAVIR
     Indication: COVID-19 treatment
     Dosage: 1 DF, 2X PER DAY?400MG/100MG
     Route: 048
  2. DULOXETINE [Interacting]
     Active Substance: DULOXETINE
     Indication: Bipolar disorder
     Dosage: 120 MG, PER DAY
     Route: 048
  3. HALOPERIDOL [Interacting]
     Active Substance: HALOPERIDOL
     Indication: Delirium
     Dosage: 1 MG, 2X PER DAY
     Route: 048
  4. LITHIUM [Interacting]
     Active Substance: LITHIUM
     Indication: Bipolar disorder
     Route: 048
  5. HYDROXYCHLOROQUINE [Concomitant]
     Active Substance: HYDROXYCHLOROQUINE
     Indication: COVID-19 treatment
     Dosage: 200 MG, 2X PER DAY
     Route: 048

REACTIONS (2)
  - Serotonin syndrome [Recovering/Resolving]
  - Off label use [Unknown]
